FAERS Safety Report 8340845-9 (Version None)
Quarter: 2012Q1

REPORT INFORMATION
  Report Type: 
  Country: None (occurrence: None)
  Receive Date: 20120329
  Receipt Date: 20090825
  Transmission Date: 20120608
  Serious: Yes (Other)
  Sender: FDA-Public Use
  Company Number: PHEH2009US09865

PATIENT
  Sex: Male

DRUGS (1)
  1. EXELON [Suspect]
     Dosage: TRANSDERMAL
     Route: 062

REACTIONS (7)
  - DIZZINESS [None]
  - ERYTHEMA [None]
  - PRURITUS [None]
  - FEELING ABNORMAL [None]
  - APATHY [None]
  - BOWEL MOVEMENT IRREGULARITY [None]
  - ATRIAL FIBRILLATION [None]
